FAERS Safety Report 5824075-8 (Version None)
Quarter: 2008Q3

REPORT INFORMATION
  Report Type: 
  Country: None (occurrence: None)
  Receive Date: 20080728
  Receipt Date: 20080722
  Transmission Date: 20090109
  Serious: Yes (Other)
  Sender: FDA-Public Use
  Company Number: US-BAYER-200827233NA

PATIENT
  Age: 30 Year
  Sex: Female
  Weight: 71 kg

DRUGS (3)
  1. MIRENA [Suspect]
     Indication: CONTRACEPTION
     Route: 015
  2. PNV [Concomitant]
     Indication: MEDICAL DIET
     Route: 048
  3. REGLAN [Concomitant]
     Route: 048

REACTIONS (1)
  - UTERINE RUPTURE [None]
